FAERS Safety Report 5862053-3 (Version None)
Quarter: 2008Q3

REPORT INFORMATION
  Report Type: 
  Country: None (occurrence: None)
  Receive Date: 20080827
  Receipt Date: 20080827
  Transmission Date: 20090109
  Serious: Yes (Other)
  Sender: FDA-Public Use
  Company Number: None

PATIENT
  Age: 56 Year
  Sex: Male
  Weight: 119.296 kg

DRUGS (8)
  1. LEXAPRO [Suspect]
     Indication: ANXIETY
     Dates: start: 20080527, end: 20080826
  2. WELLBUTRIN XL [Concomitant]
  3. SYNTHROID [Concomitant]
  4. NASONEX [Concomitant]
  5. GABAPENTIN [Concomitant]
  6. CYCLOBENZAPRINE HCL [Concomitant]
  7. PREDNISONE TAB [Concomitant]
  8. NAPROXEN [Concomitant]

REACTIONS (6)
  - CONDITION AGGRAVATED [None]
  - DISTURBANCE IN ATTENTION [None]
  - FEELING ABNORMAL [None]
  - MEMORY IMPAIRMENT [None]
  - RESTLESS LEGS SYNDROME [None]
  - WEIGHT INCREASED [None]
